FAERS Safety Report 7075160-7 (Version None)
Quarter: 2010Q4

REPORT INFORMATION
  Report Type: 
  Country: None (occurrence: None)
  Receive Date: 20101029
  Receipt Date: 20100507
  Transmission Date: 20110411
  Serious: No
  Sender: FDA-Public Use
  Company Number: US-WYE-H15135610

PATIENT
  Sex: Female

DRUGS (3)
  1. ADVIL PM [Suspect]
     Indication: ANALGESIC THERAPY
     Dosage: UNKNOWN
     Route: 048
  2. ADVIL PM [Suspect]
     Indication: INSOMNIA
  3. LIPITOR [Concomitant]

REACTIONS (1)
  - VERTIGO [None]
